FAERS Safety Report 20777084 (Version 1)
Quarter: 2022Q2

REPORT INFORMATION
  Report Type: Report from Study
  Country: AR (occurrence: AR)
  Receive Date: 20220503
  Receipt Date: 20220503
  Transmission Date: 20220720
  Serious: Yes (Death)
  Sender: FDA-Public Use
  Company Number: AR-JNJFOC-20220458524

PATIENT
  Age: 89 Year
  Sex: Female
  Weight: 58 kg

DRUGS (1)
  1. IMBRUVICA [Suspect]
     Active Substance: IBRUTINIB
     Indication: Chronic lymphocytic leukaemia
     Route: 048
     Dates: start: 20210713, end: 202111

REACTIONS (1)
  - Death [Fatal]

NARRATIVE: CASE EVENT DATE: 20211125
